FAERS Safety Report 17482905 (Version 1)
Quarter: 2020Q1

REPORT INFORMATION
  Report Type: Spontaneous
  Country: US (occurrence: US)
  Receive Date: 20191014
  Receipt Date: 20191014
  Transmission Date: 20200409
  Serious: Yes (Life-Threatening, Hospitalization, Disabling)
  Sender: FDA-Public Use
  Company Number: None

PATIENT
  Age: 20 Year
  Sex: Male

DRUGS (3)
  1. DANK VAPES THC [Suspect]
     Active Substance: .DELTA.8-TETRAHYDROCANNABINOL\DEVICE\HERBALS
  2. PROPRANOLOL [Concomitant]
     Active Substance: PROPRANOLOL HYDROCHLORIDE
  3. LEXAPRO [Concomitant]
     Active Substance: ESCITALOPRAM OXALATE
     Dates: start: 20190911

REACTIONS (14)
  - Fatigue [None]
  - Hepatic enzyme increased [None]
  - Pallor [None]
  - Asthenia [None]
  - Night sweats [None]
  - Atypical pneumonia [None]
  - Chills [None]
  - Abdominal pain [None]
  - Platelet count decreased [None]
  - Dyspnoea [None]
  - Pyrexia [None]
  - Nausea [None]
  - Diarrhoea [None]
  - Weight decreased [None]
